FAERS Safety Report 24115741 (Version 2)
Quarter: 2024Q3

REPORT INFORMATION
  Report Type: Report from Study
  Country: US (occurrence: US)
  Receive Date: 20240721
  Receipt Date: 20240809
  Transmission Date: 20241016
  Serious: Yes (Other)
  Sender: AMGEN
  Company Number: US-AMGEN-USASL2024125621

PATIENT
  Age: 76 Year
  Sex: Female

DRUGS (3)
  1. TEPEZZA [Suspect]
     Active Substance: TEPROTUMUMAB-TRBW
     Indication: Endocrine ophthalmopathy
     Dosage: 20 MILLIGRAM (FIRST DOSE)
     Route: 042
     Dates: start: 20240514
  2. TEPEZZA [Suspect]
     Active Substance: TEPROTUMUMAB-TRBW
     Dosage: 20 MILLIGRAM (THIRD DOSE)
     Route: 042
     Dates: start: 20240624
  3. TEPEZZA [Suspect]
     Active Substance: TEPROTUMUMAB-TRBW
     Dosage: UNK, (FOURTH INFUSION)
     Route: 042
     Dates: start: 2024

REACTIONS (11)
  - Exophthalmos [Unknown]
  - Dry mouth [Unknown]
  - Skin texture abnormal [Unknown]
  - Oropharyngeal pain [Unknown]
  - Eye irritation [Unknown]
  - Dry eye [Unknown]
  - Eye swelling [Unknown]
  - Thirst [Unknown]
  - Madarosis [Unknown]
  - Alopecia [Unknown]
  - Fatigue [Unknown]

NARRATIVE: CASE EVENT DATE: 20240101
